FAERS Safety Report 12749865 (Version 1)
Quarter: 2016Q3

REPORT INFORMATION
  Report Type: Spontaneous
  Country: TR (occurrence: TR)
  Receive Date: 20160915
  Receipt Date: 20160915
  Transmission Date: 20161109
  Serious: Yes (Other)
  Sender: FDA-Public Use
  Company Number: TR-FRESENIUS KABI-FK201606530

PATIENT
  Age: 13 Year
  Sex: Female

DRUGS (2)
  1. LEVETIRACETAM (MANUFACTURER UNKNOWN) [Suspect]
     Active Substance: LEVETIRACETAM
     Indication: PARTIAL SEIZURES WITH SECONDARY GENERALISATION
     Route: 065
  2. LEVETIRACETAM (MANUFACTURER UNKNOWN) [Suspect]
     Active Substance: LEVETIRACETAM
     Route: 065

REACTIONS (1)
  - Rhabdomyolysis [Recovered/Resolved]
